FAERS Safety Report 6279961-4 (Version None)
Quarter: 2009Q3

REPORT INFORMATION
  Report Type: 
  Country: None (occurrence: None)
  Receive Date: 20090723
  Receipt Date: 20090331
  Transmission Date: 20100115
  Serious: No
  Sender: FDA-Public Use
  Company Number: US-AMGEN-KDL332153

PATIENT
  Sex: Male
  Weight: 103.5 kg

DRUGS (8)
  1. PROCRIT [Suspect]
     Indication: RENAL FAILURE CHRONIC
     Dates: start: 20081001
  2. LIPITOR [Concomitant]
     Route: 048
     Dates: start: 20080801
  3. VITAMIN D [Concomitant]
     Dates: start: 20080801
  4. TORSEMIDE [Concomitant]
     Dates: start: 20080801
  5. FLOMAX [Concomitant]
     Dates: start: 20080801
  6. SPIRONOLACTONE [Concomitant]
     Dates: start: 20080801
  7. XALATAN [Concomitant]
     Route: 047
     Dates: start: 20070101
  8. TIMOLOL MALEATE [Concomitant]
     Route: 047
     Dates: start: 20070101

REACTIONS (1)
  - THERAPEUTIC RESPONSE DELAYED [None]
